FAERS Safety Report 15278131 (Version 1)
Quarter: 2018Q3

REPORT INFORMATION
  Report Type: Spontaneous
  Country: DE (occurrence: DE)
  Receive Date: 20180814
  Receipt Date: 20180814
  Transmission Date: 20181010
  Serious: Yes (Other)
  Sender: FDA-Public Use
  Company Number: DE-ELI_LILLY_AND_COMPANY-DE201808004714

PATIENT
  Age: 70 Year
  Sex: Male

DRUGS (1)
  1. HUMALOG [Suspect]
     Active Substance: INSULIN LISPRO
     Indication: DIABETES MELLITUS
     Dosage: UNK, UNKNOWN
     Route: 058

REACTIONS (13)
  - Visual impairment [Unknown]
  - Peripheral coldness [Unknown]
  - Platelet count decreased [Unknown]
  - Visual impairment [Unknown]
  - Upper limb fracture [Unknown]
  - Cardiac disorder [Unknown]
  - Mental disorder [Unknown]
  - Photophobia [Unknown]
  - Arthralgia [Unknown]
  - Pain in extremity [Unknown]
  - Injury associated with device [Unknown]
  - Dysphagia [Unknown]
  - Lacrimation increased [Unknown]

NARRATIVE: CASE EVENT DATE: 2005
